FAERS Safety Report 7227823-8 (Version None)
Quarter: 2011Q1

REPORT INFORMATION
  Report Type: 
  Country: None (occurrence: None)
  Receive Date: 20110111
  Receipt Date: 20110111
  Transmission Date: 20110831
  Serious: Yes (Hospitalization)
  Sender: FDA-Public Use
  Company Number: None

PATIENT
  Age: 59 Year
  Sex: Female
  Weight: 122.4712 kg

DRUGS (1)
  1. LISINOPRIL [Suspect]
     Indication: HYPERTENSION
     Dosage: 1 ONCE A DAY
     Dates: start: 20080101, end: 20110101

REACTIONS (4)
  - DIZZINESS [None]
  - SYNCOPE [None]
  - SWOLLEN TONGUE [None]
  - FEAR [None]
